FAERS Safety Report 20700803 (Version 1)
Quarter: 2022Q2

REPORT INFORMATION
  Report Type: Spontaneous
  Country: US (occurrence: None)
  Receive Date: 20220411
  Receipt Date: 20220411
  Transmission Date: 20220721
  Serious: Yes (Death)
  Sender: FDA-Public Use
  Company Number: None

PATIENT
  Age: 90 Year
  Sex: Male

DRUGS (8)
  1. ABIRATERONE [Suspect]
     Active Substance: ABIRATERONE
     Indication: Prostate cancer
     Dosage: FREQUENCY : DAILY;?
     Route: 048
     Dates: start: 20210212, end: 20220409
  2. ELIGARD [Suspect]
     Active Substance: LEUPROLIDE ACETATE
     Indication: Prostate cancer
     Dosage: OTHER QUANTITY : 22.5MG;?OTHER FREQUENCY : EVERY 3 MO;?
     Route: 058
     Dates: start: 20210125, end: 20220409
  3. AMLODIPINE [Concomitant]
     Active Substance: AMLODIPINE BESYLATE
  4. ASPIRIN [Concomitant]
     Active Substance: ASPIRIN
  5. carbidoba/levodopa [Concomitant]
  6. FISH OIL [Concomitant]
     Active Substance: FISH OIL
  7. FLUTICASONE [Concomitant]
     Active Substance: FLUTICASONE
  8. FOSAMAX [Concomitant]
     Active Substance: ALENDRONATE SODIUM

REACTIONS (1)
  - Death [None]

NARRATIVE: CASE EVENT DATE: 20220409
